FAERS Safety Report 5939655-9 (Version None)
Quarter: 2008Q4

REPORT INFORMATION
  Report Type: 
  Country: None (occurrence: None)
  Receive Date: 20081030
  Receipt Date: 20081030
  Transmission Date: 20090506
  Serious: Yes (Hospitalization)
  Sender: FDA-Public Use
  Company Number: None

PATIENT
  Age: 25 Year
  Sex: Female
  Weight: 72.5755 kg

DRUGS (2)
  1. BACTRIM DS [Suspect]
     Indication: ARTHROPOD BITE
     Dosage: ONE TABLET BID PO
     Route: 048
  2. BACTRIM DS [Suspect]
     Indication: CELLULITIS
     Dosage: ONE TABLET BID PO
     Route: 048

REACTIONS (1)
  - PANCREATITIS [None]
